FAERS Safety Report 6393047-X (Version None)
Quarter: 2009Q4

REPORT INFORMATION
  Report Type: 
  Country: None (occurrence: None)
  Receive Date: 20091008
  Receipt Date: 20090929
  Transmission Date: 20100525
  Serious: Yes (Other)
  Sender: FDA-Public Use
  Company Number: US-RANBAXY-2009US-28282

PATIENT

DRUGS (10)
  1. PRAVASTATIN [Suspect]
     Indication: DRUG USE FOR UNKNOWN INDICATION
     Dosage: 80 MG, QD
     Route: 048
     Dates: start: 20080501, end: 20090805
  2. LEVOFLOXACIN [Suspect]
     Indication: SKIN ULCER
     Dosage: UNK , UNK
     Route: 065
     Dates: start: 20090427, end: 20090506
  3. LEVOFLOXACIN [Suspect]
     Dosage: UNK
     Route: 065
     Dates: start: 20090722, end: 20090731
  4. LEVOFLOXACIN [Suspect]
     Dosage: UNK
     Route: 065
     Dates: start: 20090805, end: 20090812
  5. NIASPAN [Suspect]
     Indication: DRUG USE FOR UNKNOWN INDICATION
     Dosage: 500 MG, QD
     Route: 048
     Dates: start: 20080825, end: 20090805
  6. DAPAGLIFLOZIN [Suspect]
     Indication: TYPE 2 DIABETES MELLITUS
     Dosage: UNK
     Route: 048
     Dates: start: 20090212, end: 20090805
  7. ACETYLSALICYLIC ACID [Concomitant]
     Indication: DRUG USE FOR UNKNOWN INDICATION
     Dosage: UNK
     Route: 065
  8. GABAPENTIN [Concomitant]
     Indication: DRUG USE FOR UNKNOWN INDICATION
     Dosage: UNK
     Route: 065
  9. FERROUS SULFATE TAB [Concomitant]
     Indication: DRUG USE FOR UNKNOWN INDICATION
     Dosage: UNK
     Route: 065
     Dates: start: 20000301
  10. ISOPHANE INSULIN [Concomitant]
     Indication: DRUG USE FOR UNKNOWN INDICATION
     Dosage: UNK
     Route: 065
     Dates: start: 20090528

REACTIONS (8)
  - CHROMATURIA [None]
  - ERYTHEMA [None]
  - HEPATIC ENZYME INCREASED [None]
  - LIVER DISORDER [None]
  - MIXED LIVER INJURY [None]
  - OEDEMA [None]
  - PURULENT DISCHARGE [None]
  - SKIN ULCER [None]
